FAERS Safety Report 6048507-8 (Version None)
Quarter: 2009Q1

REPORT INFORMATION
  Report Type: 
  Country: None (occurrence: None)
  Receive Date: 20090123
  Receipt Date: 20090119
  Transmission Date: 20090719
  Serious: Yes (Life-Threatening, Hospitalization)
  Sender: FDA-Public Use
  Company Number: B0555116A

PATIENT
  Age: 54 Year
  Sex: Male

DRUGS (1)
  1. CLAMOXYL [Suspect]
     Indication: TOOTH ABSCESS
     Dosage: 1G SINGLE DOSE
     Route: 048
     Dates: start: 20080131, end: 20080131

REACTIONS (7)
  - BLOOD PRESSURE DECREASED [None]
  - BRADYCARDIA [None]
  - CIRCULATORY COLLAPSE [None]
  - DIARRHOEA [None]
  - ELECTROCARDIOGRAM ABNORMAL [None]
  - MALAISE [None]
  - VOMITING [None]
